FAERS Safety Report 16638896 (Version 2)
Quarter: 2019Q3

REPORT INFORMATION
  Report Type: Spontaneous
  Country: CN (occurrence: CN)
  Receive Date: 20190726
  Receipt Date: 20190730
  Transmission Date: 20191004
  Serious: Yes (Death)
  Sender: FDA-Public Use
  Company Number: CN-ASTRAZENECA-2019SF06319

PATIENT
  Age: 55 Year
  Sex: Female
  Weight: 74 kg

DRUGS (1)
  1. LYNPARZA [Suspect]
     Active Substance: OLAPARIB
     Indication: OVARIAN EPITHELIAL CANCER
     Dosage: 2 TABLETS, TWO TIMES A DAY (OTHERS UNKNOWN)
     Route: 048

REACTIONS (3)
  - Malignant neoplasm progression [Fatal]
  - Ascites [Fatal]
  - Insomnia [Unknown]

NARRATIVE: CASE EVENT DATE: 2019
